FAERS Safety Report 9344630 (Version 2)
Quarter: 2013Q3

REPORT INFORMATION
  Report Type: Spontaneous
  Country: US (occurrence: US)
  Receive Date: 20130612
  Receipt Date: 20130723
  Transmission Date: 20140515
  Serious: Yes (Other)
  Sender: FDA-Public Use
  Company Number: US-GILEAD-2013-0075912

PATIENT
  Sex: Female

DRUGS (1)
  1. LETAIRIS [Suspect]
     Indication: PULMONARY ARTERIAL HYPERTENSION
     Route: 048
     Dates: start: 20130404

REACTIONS (4)
  - Pulmonary oedema [Recovered/Resolved]
  - Cardiac failure [Unknown]
  - Dyspnoea [Unknown]
  - Fluid retention [Unknown]
